FAERS Safety Report 8153076-2 (Version None)
Quarter: 2012Q1

REPORT INFORMATION
  Report Type: 
  Country: None (occurrence: None)
  Receive Date: 20120221
  Receipt Date: 20120213
  Transmission Date: 20120608
  Serious: Yes (Other)
  Sender: FDA-Public Use
  Company Number: US-ASTELLAS-2012US001795

PATIENT
  Sex: Male
  Weight: 71 kg

DRUGS (6)
  1. METOPROLOL TARTRATE [Concomitant]
     Indication: ANTICOAGULANT THERAPY
     Dosage: 25 MG, BID
     Route: 048
     Dates: start: 20100815
  2. CALCIUM CARBONATE [Concomitant]
     Indication: MINERAL SUPPLEMENTATION
     Dosage: 600 MG, UID/QD
     Route: 048
     Dates: start: 20040723
  3. ASPIRIN [Concomitant]
     Indication: ANTICOAGULANT THERAPY
     Dosage: 81 MG, BID
     Route: 048
     Dates: start: 20100815
  4. MYCOPHENOLATE MOFETIL (CELLCEPT) [Concomitant]
     Indication: LIVER TRANSPLANT
     Dosage: 250 MG, UID/QD
     Route: 048
     Dates: start: 20040723
  5. MAGNESIUM [Concomitant]
     Indication: MINERAL SUPPLEMENTATION
     Dosage: 400 MG, BID
     Route: 048
     Dates: start: 20040723
  6. PROGRAF [Suspect]
     Indication: LIVER TRANSPLANT
     Dosage: 1 MG, BID
     Route: 048
     Dates: start: 20040723

REACTIONS (8)
  - COUGH [None]
  - NASAL CONGESTION [None]
  - HYPERKALAEMIA [None]
  - NEUROPATHY PERIPHERAL [None]
  - ARTERIOSCLEROSIS CORONARY ARTERY [None]
  - DIABETES MELLITUS [None]
  - GRAFT DYSFUNCTION [None]
  - HEPATITIS C [None]
